FAERS Safety Report 9180135 (Version 1)
Quarter: 2013Q1

REPORT INFORMATION
  Report Type: Report from Study
  Country: US (occurrence: US)
  Receive Date: 20130321
  Receipt Date: 20130321
  Transmission Date: 20140127
  Serious: Yes (Other)
  Sender: FDA-Public Use
  Company Number: US-US-EMD SERONO, INC.-7199854

PATIENT
  Sex: Female

DRUGS (2)
  1. REBIF [Suspect]
     Indication: MULTIPLE SCLEROSIS
     Route: 058
     Dates: start: 20080915, end: 20100520
  2. REBIF [Suspect]
     Dates: start: 201105, end: 201107

REACTIONS (4)
  - Amniotic cavity infection [Recovered/Resolved]
  - Premature rupture of membranes [Recovered/Resolved]
  - Arrested labour [Recovered/Resolved]
  - Maternal exposure timing unspecified [Recovered/Resolved]
